FAERS Safety Report 9301335 (Version 1)
Quarter: 2013Q2

REPORT INFORMATION
  Report Type: Spontaneous
  Country: IT (occurrence: IT)
  Receive Date: 20130521
  Receipt Date: 20130521
  Transmission Date: 20140414
  Serious: Yes (Hospitalization)
  Sender: FDA-Public Use
  Company Number: IT-TEVA-404968ISR

PATIENT
  Sex: Female

DRUGS (3)
  1. LITHIUM [Suspect]
  2. VALSARTAN [Suspect]
  3. IDROCLOROTIAZIDE [Suspect]

REACTIONS (3)
  - Renal failure acute [Not Recovered/Not Resolved]
  - Dehydration [Not Recovered/Not Resolved]
  - Dysentery [Not Recovered/Not Resolved]
